FAERS Safety Report 10708681 (Version 1)
Quarter: 2015Q1

REPORT INFORMATION
  Report Type: Spontaneous
  Country: US (occurrence: US)
  Receive Date: 20150113
  Receipt Date: 20150113
  Transmission Date: 20150721
  Serious: Yes (Other)
  Sender: FDA-Public Use
  Company Number: US-ASTRAZENECA-2015SE01246

PATIENT

DRUGS (1)
  1. NEXIUM [Suspect]
     Active Substance: ESOMEPRAZOLE MAGNESIUM
     Route: 048

REACTIONS (6)
  - Blood potassium decreased [Unknown]
  - Rib fracture [Unknown]
  - Blood magnesium decreased [Unknown]
  - Spinal fracture [Unknown]
  - Renal injury [Unknown]
  - Blood calcium decreased [Unknown]
